FAERS Safety Report 8056381-3 (Version None)
Quarter: 2012Q1

REPORT INFORMATION
  Report Type: 
  Country: None (occurrence: None)
  Receive Date: 20120119
  Receipt Date: 20120116
  Transmission Date: 20120608
  Serious: Yes (Hospitalization)
  Sender: FDA-Public Use
  Company Number: FR-PFIZER INC-2012011543

PATIENT
  Age: 87 Year
  Sex: Female

DRUGS (8)
  1. GENTAMICIN SULFATE [Concomitant]
     Dosage: UNK
     Dates: start: 20111019, end: 20111021
  2. VALSARTAN [Concomitant]
     Indication: HYPERTENSION
     Dosage: UNK
  3. CLINDAMYCIN HCL [Suspect]
     Dosage: 1800 MG, 1X/DAY
     Route: 042
     Dates: start: 20111017, end: 20111024
  4. CLAFORAN [Suspect]
     Dosage: 12 G, 1X/DAY
     Route: 042
     Dates: start: 20111021, end: 20111024
  5. ROCEPHIN [Concomitant]
     Dosage: UNK
     Route: 042
     Dates: start: 20111017, end: 20111018
  6. AMOXICILLIN TRIHYDRATE [Concomitant]
     Indication: ENDOCARDITIS
     Dosage: 3 G, 1X/DAY
     Dates: start: 20111018, end: 20111018
  7. AMOXICILLIN TRIHYDRATE [Concomitant]
     Dosage: 12 G, 1X/DAY
     Route: 042
     Dates: start: 20111019, end: 20111021
  8. RIFADIN [Suspect]
     Dosage: 1200 MG, 1X/DAY
     Route: 042
     Dates: start: 20111021, end: 20111024

REACTIONS (1)
  - DRUG RASH WITH EOSINOPHILIA AND SYSTEMIC SYMPTOMS [None]
